FAERS Safety Report 4619274-7 (Version None)
Quarter: 2005Q1

REPORT INFORMATION
  Report Type: 
  Country: None (occurrence: None)
  Receive Date: 20050325
  Receipt Date: 20050317
  Transmission Date: 20050727
  Serious: Yes (Hospitalization)
  Sender: FDA-Public Use
  Company Number: US-MERCK-0503USA03031

PATIENT
  Age: 68 Year
  Sex: Male

DRUGS (1)
  1. ZOCOR [Suspect]
     Route: 048

REACTIONS (7)
  - ABDOMINAL DISCOMFORT [None]
  - CARDIAC FAILURE CONGESTIVE [None]
  - CREATININE RENAL CLEARANCE DECREASED [None]
  - HAEMODIALYSIS [None]
  - MYALGIA [None]
  - PULMONARY OEDEMA [None]
  - UPPER RESPIRATORY TRACT INFECTION [None]
